FAERS Safety Report 7904055-9 (Version None)
Quarter: 2011Q4

REPORT INFORMATION
  Report Type: 
  Country: None (occurrence: None)
  Receive Date: 20111109
  Receipt Date: 20111106
  Transmission Date: 20120403
  Serious: Yes (Other)
  Sender: FDA-Public Use
  Company Number: US-PFIZER INC-2011270904

PATIENT
  Sex: Male
  Weight: 69.388 kg

DRUGS (2)
  1. VIAGRA [Suspect]
     Dosage: 100 MG, UNK
     Route: 048
     Dates: start: 20110704
  2. VIAGRA [Suspect]
     Dosage: THREE 100 MG IN A DAY
     Dates: start: 20111104

REACTIONS (3)
  - DYSURIA [None]
  - INCORRECT DOSE ADMINISTERED [None]
  - ERECTION INCREASED [None]
